FAERS Safety Report 6686592-0 (Version None)
Quarter: 2010Q2

REPORT INFORMATION
  Report Type: 
  Country: None (occurrence: None)
  Receive Date: 20100419
  Receipt Date: 20100408
  Transmission Date: 20101027
  Serious: Yes (Hospitalization)
  Sender: FDA-Public Use
  Company Number: JP-JNJFOC-20100308706

PATIENT
  Sex: Male
  Weight: 52 kg

DRUGS (15)
  1. REMICADE [Suspect]
     Indication: CROHN'S DISEASE
     Route: 042
  2. REMICADE [Suspect]
     Route: 042
  3. REMICADE [Suspect]
     Dosage: 60TH INFUSION
     Route: 042
  4. REMICADE [Suspect]
     Route: 042
  5. REMICADE [Suspect]
     Route: 042
  6. IMURAN [Suspect]
     Indication: DRUG USE FOR UNKNOWN INDICATION
     Route: 048
  7. IMURAN [Suspect]
     Route: 048
  8. LOPEMIN [Concomitant]
     Dosage: 3 CAP PER DAY
     Route: 048
  9. HALCION [Concomitant]
     Route: 048
  10. LENDORMIN D [Concomitant]
     Route: 048
  11. MIYA BM [Concomitant]
     Route: 048
  12. ACINON [Concomitant]
     Route: 048
  13. SALAZOPYRIN [Concomitant]
     Dosage: ROUTE: ^PR^
  14. FERROMIA [Concomitant]
     Route: 048
  15. PHELLOBERIN [Concomitant]
     Dosage: ^6 TAB^
     Route: 048

REACTIONS (3)
  - ACUTE MYELOMONOCYTIC LEUKAEMIA [None]
  - DRUG INEFFECTIVE [None]
  - GINGIVITIS [None]
